FAERS Safety Report 5070377-5 (Version None)
Quarter: 2006Q3

REPORT INFORMATION
  Report Type: 
  Country: None (occurrence: None)
  Receive Date: 20060731
  Receipt Date: 20060717
  Transmission Date: 20061208
  Serious: Yes (Death, Other)
  Sender: FDA-Public Use
  Company Number: 2006EU001880

PATIENT
  Sex: Male

DRUGS (2)
  1. PROGRAF [Suspect]
     Indication: HEART TRANSPLANT
  2. TERCIAN (CYAMEMAZINE) [Suspect]
     Indication: NEUROLEPTIC MALIGNANT SYNDROME

REACTIONS (6)
  - COMPLETED SUICIDE [None]
  - DRUG INTERACTION [None]
  - DRUG TOXICITY [None]
  - INTENTIONAL OVERDOSE [None]
  - LOW CARDIAC OUTPUT SYNDROME [None]
  - VENTRICULAR FIBRILLATION [None]
